FAERS Safety Report 7015891-8 (Version None)
Quarter: 2010Q3

REPORT INFORMATION
  Report Type: 
  Country: None (occurrence: None)
  Receive Date: 20100923
  Receipt Date: 20100816
  Transmission Date: 20110219
  Serious: Yes (Death)
  Sender: FDA-Public Use
  Company Number: 018607

PATIENT
  Age: 30 Year
  Sex: Male

DRUGS (4)
  1. VIMPAT [Suspect]
     Dosage: (50 MG BID)
     Dates: start: 20100101
  2. LAMOTRIGINE [Concomitant]
  3. SODIUM VLAPROATE [Concomitant]
  4. RISPERIDONE [Concomitant]

REACTIONS (1)
  - ASPHYXIA [None]
